FAERS Safety Report 15268718 (Version 3)
Quarter: 2018Q3

REPORT INFORMATION
  Report Type: Report from Study
  Country: US (occurrence: US)
  Receive Date: 20180813
  Receipt Date: 20180910
  Transmission Date: 20181010
  Serious: No
  Sender: FDA-Public Use
  Company Number: US-AMGEN-USASL2018109779

PATIENT
  Age: 65 Year
  Sex: Female

DRUGS (3)
  1. MIRALAX [Suspect]
     Active Substance: POLYETHYLENE GLYCOL 3350
     Indication: PRODUCT USED FOR UNKNOWN INDICATION
     Dosage: UNK
     Route: 065
  2. ENBREL [Suspect]
     Active Substance: ETANERCEPT
     Indication: RHEUMATOID ARTHRITIS
     Dosage: 50 MG, QWK
     Route: 065
     Dates: start: 201807
  3. XANAX [Concomitant]
     Active Substance: ALPRAZOLAM

REACTIONS (10)
  - Injection site pain [Unknown]
  - Vulvovaginal pain [Recovering/Resolving]
  - Injection site discolouration [Not Recovered/Not Resolved]
  - Night sweats [Unknown]
  - Abdominal pain [Unknown]
  - Diarrhoea [Unknown]
  - Injection site bruising [Unknown]
  - Injection site erythema [Unknown]
  - Constipation [Unknown]
  - Proctalgia [Unknown]

NARRATIVE: CASE EVENT DATE: 2018
